FAERS Safety Report 8486372-X (Version None)
Quarter: 2012Q3

REPORT INFORMATION
  Report Type: 
  Country: None (occurrence: None)
  Receive Date: 20120703
  Receipt Date: 20120608
  Transmission Date: 20120928
  Serious: Yes (Other)
  Sender: FDA-Public Use
  Company Number: GR-GLAXOSMITHKLINE-B0807470A

PATIENT
  Age: 72 Year
  Sex: Male

DRUGS (3)
  1. KEPPRA [Concomitant]
  2. FLUTICASONE PROPIONATE/SALMETEROL [Suspect]
     Indication: CHRONIC OBSTRUCTIVE PULMONARY DISEASE
     Route: 055
  3. SPIRIVA [Suspect]
     Indication: PRODUCT USED FOR UNKNOWN INDICATION
     Route: 055

REACTIONS (4)
  - BRADYCARDIA [None]
  - ARRHYTHMIA [None]
  - ASTHENIA [None]
  - SYNCOPE [None]
